FAERS Safety Report 7329488-3 (Version None)
Quarter: 2011Q1

REPORT INFORMATION
  Report Type: 
  Country: None (occurrence: None)
  Receive Date: 20110303
  Receipt Date: 20110222
  Transmission Date: 20110831
  Serious: Yes (Other)
  Sender: FDA-Public Use
  Company Number: US-CEPHALON-2011000855

PATIENT
  Sex: Male

DRUGS (1)
  1. AMRIX [Suspect]
     Indication: MUSCLE INJURY
     Route: 048

REACTIONS (2)
  - LETHARGY [None]
  - FATIGUE [None]
